FAERS Safety Report 5918992-8 (Version None)
Quarter: 2008Q4

REPORT INFORMATION
  Report Type: 
  Country: None (occurrence: None)
  Receive Date: 20081015
  Receipt Date: 20081009
  Transmission Date: 20090506
  Serious: Yes (Hospitalization)
  Sender: FDA-Public Use
  Company Number: CL-ABBOTT-08P-034-0481405-00

PATIENT
  Age: 25 Year
  Sex: Female

DRUGS (2)
  1. VALCOTE ER [Suspect]
     Indication: BIPOLAR DISORDER
     Route: 048
     Dates: start: 20080715, end: 20080717
  2. VALCOTE ER [Suspect]
     Indication: DEPRESSION

REACTIONS (4)
  - DEPRESSED LEVEL OF CONSCIOUSNESS [None]
  - DYSARTHRIA [None]
  - MOTOR DYSFUNCTION [None]
  - PSYCHOMOTOR HYPERACTIVITY [None]
